FAERS Safety Report 9452344 (Version 1)
Quarter: 2013Q3

REPORT INFORMATION
  Report Type: Spontaneous
  Country: US (occurrence: US)
  Receive Date: 20130812
  Receipt Date: 20130812
  Transmission Date: 20140515
  Serious: No
  Sender: FDA-Public Use
  Company Number: US-BAYER-2013-096856

PATIENT
  Age: 88 Year
  Sex: Female
  Weight: 66 kg

DRUGS (4)
  1. ALEVE CAPLET [Suspect]
     Indication: ARTHRITIS
     Dosage: 2 DF, UNK
     Route: 048
     Dates: start: 201307
  2. BAYER GENUINE ASPIRIN ORIGINAL STRENGTH [Suspect]
     Indication: ARTHRITIS
     Dosage: 1 DF, UNK EVERY DAY.
     Route: 048
  3. BAYER EXTRA STRENGTH BACK + BODY PAIN [Suspect]
     Indication: ARTHRITIS
     Dosage: 1 DF, OTHER FREQUENCY
     Route: 048
     Dates: start: 2013
  4. CENTRUM SILVER [Concomitant]

REACTIONS (2)
  - Insomnia [None]
  - Incorrect drug administration duration [None]
